FAERS Safety Report 14380087 (Version 1)
Quarter: 2018Q1

REPORT INFORMATION
  Report Type: Spontaneous
  Country: IE (occurrence: IE)
  Receive Date: 20180112
  Receipt Date: 20180112
  Transmission Date: 20180509
  Serious: Yes (Hospitalization, Other)
  Sender: FDA-Public Use
  Company Number: IE-AMGEN-IRLSP2018003346

PATIENT
  Sex: Female

DRUGS (1)
  1. PROLIA [Suspect]
     Active Substance: DENOSUMAB
     Indication: OSTEOPOROSIS
     Dosage: UNK
     Route: 065
     Dates: start: 2015

REACTIONS (10)
  - Paraesthesia [Unknown]
  - Peripheral coldness [Unknown]
  - Influenza [Unknown]
  - Feeling abnormal [Unknown]
  - Malaise [Not Recovered/Not Resolved]
  - Decreased appetite [Unknown]
  - Infection [Not Recovered/Not Resolved]
  - Parathyroidectomy [Unknown]
  - Headache [Unknown]
  - Drug hypersensitivity [Unknown]

NARRATIVE: CASE EVENT DATE: 2015
